FAERS Safety Report 15800699 (Version 3)
Quarter: 2019Q1

REPORT INFORMATION
  Report Type: Spontaneous
  Country: US (occurrence: US)
  Receive Date: 20190109
  Receipt Date: 20190125
  Transmission Date: 20190417
  Serious: Yes (Hospitalization)
  Sender: FDA-Public Use
  Company Number: US-ELI_LILLY_AND_COMPANY-US201901001506

PATIENT
  Sex: Male

DRUGS (2)
  1. TRULICITY [Suspect]
     Active Substance: DULAGLUTIDE
     Indication: PRODUCT USED FOR UNKNOWN INDICATION
     Dosage: 1.5 MG, WEEKLY (1/W)
     Route: 058
  2. TRESIBA [Concomitant]
     Active Substance: INSULIN DEGLUDEC
     Indication: PRODUCT USED FOR UNKNOWN INDICATION

REACTIONS (10)
  - Wound [Recovering/Resolving]
  - Injection site pain [Recovered/Resolved]
  - Lipoma [Recovering/Resolving]
  - Impaired gastric emptying [Recovered/Resolved]
  - Glycosylated haemoglobin increased [Recovering/Resolving]
  - Hyperkeratosis [Recovering/Resolving]
  - Drug ineffective [Unknown]
  - Heat stroke [Recovered/Resolved]
  - Blood glucose increased [Recovering/Resolving]
  - Precancerous cells present [Recovering/Resolving]
